FAERS Safety Report 5770814-4 (Version None)
Quarter: 2008Q2

REPORT INFORMATION
  Report Type: 
  Country: None (occurrence: None)
  Receive Date: 20080613
  Receipt Date: 20080512
  Transmission Date: 20081010
  Serious: No
  Sender: FDA-Public Use
  Company Number: US-ABBOTT-08P-163-0451932-00

PATIENT
  Sex: Female
  Weight: 64.468 kg

DRUGS (6)
  1. HUMIRA 20 MG/0.4 ML PRE-FILLED SYRINGE [Suspect]
     Indication: CROHN'S DISEASE
     Route: 050
     Dates: start: 20070301
  2. HUMIRA 20 MG/0.4 ML PRE-FILLED SYRINGE [Suspect]
     Route: 050
     Dates: end: 20070301
  3. HUMIRA 20 MG/0.4 ML PRE-FILLED SYRINGE [Suspect]
     Route: 050
     Dates: start: 20050101
  4. HUMIRA 20 MG/0.4 ML PRE-FILLED SYRINGE [Suspect]
     Dosage: PEN
  5. PANTOPRAZOLE [Concomitant]
     Indication: DYSPEPSIA
  6. TYSABRI [Concomitant]
     Indication: CROHN'S DISEASE

REACTIONS (5)
  - ABDOMINAL PAIN [None]
  - DIARRHOEA [None]
  - DYSPEPSIA [None]
  - PAIN [None]
  - REGURGITATION [None]
